FAERS Safety Report 8632005 (Version 2)
Quarter: 2013Q1

REPORT INFORMATION
  Report Type: Spontaneous
  Country: US (occurrence: US)
  Receive Date: 20120625
  Receipt Date: 20130201
  Transmission Date: 20140127
  Serious: No
  Sender: FDA-Public Use
  Company Number: PHEH2012US005361

PATIENT
  Age: 69 Year
  Sex: Female
  Weight: 84.81 kg

DRUGS (7)
  1. TASIGNA [Suspect]
     Indication: NEOPLASM MALIGNANT
     Dosage: 400 MG, BID
     Route: 048
     Dates: start: 20100826
  2. TASIGNA [Suspect]
     Dosage: 200 MG, BID
     Route: 048
     Dates: start: 20101101
  3. LEVOTHYROXINE SODIUM [Concomitant]
  4. IBUPROFEN [Concomitant]
  5. SIMVASTATIN [Concomitant]
  6. GABAPENTIN [Concomitant]
  7. LOSARTAN POTASSIUM [Concomitant]

REACTIONS (7)
  - Weight increased [Not Recovered/Not Resolved]
  - Increased appetite [Not Recovered/Not Resolved]
  - Rash [Recovering/Resolving]
  - Skin discolouration [Recovering/Resolving]
  - Feeling cold [Not Recovered/Not Resolved]
  - Bone pain [Not Recovered/Not Resolved]
  - Muscle spasms [Not Recovered/Not Resolved]
